FAERS Safety Report 4564454-2 (Version None)
Quarter: 2005Q1

REPORT INFORMATION
  Report Type: 
  Country: None (occurrence: None)
  Receive Date: 20050128
  Receipt Date: 20040305
  Transmission Date: 20050727
  Serious: No
  Sender: FDA-Public Use
  Company Number: US-BRISTOL-MYERS SQUIBB COMPANY-12525614

PATIENT
  Sex: Male
  Weight: 73 kg

DRUGS (2)
  1. ULTRAVATE [Suspect]
     Indication: SKIN DISORDER
     Route: 061
  2. THYROID EXTRACT [Concomitant]

REACTIONS (2)
  - HEADACHE [None]
  - RASH [None]
